FAERS Safety Report 18170833 (Version 7)
Quarter: 2021Q1

REPORT INFORMATION
  Report Type: Spontaneous
  Country: DE (occurrence: DE)
  Receive Date: 20200819
  Receipt Date: 20210223
  Transmission Date: 20210419
  Serious: Yes (Life-Threatening, Hospitalization, Disabling, Other)
  Sender: FDA-Public Use
  Company Number: DE-ALLERGAN-2030061US

PATIENT
  Sex: Male
  Weight: 88 kg

DRUGS (50)
  1. DEX UNK [Suspect]
     Active Substance: UNSPECIFIED INGREDIENT
     Indication: PROCEDURAL VOMITING
  2. DEX UNK [Suspect]
     Active Substance: UNSPECIFIED INGREDIENT
     Indication: SEROUS RETINOPATHY
  3. DEX UNK [Suspect]
     Active Substance: UNSPECIFIED INGREDIENT
     Indication: PROCEDURAL VOMITING
  4. DEXAMETHASONE. [Suspect]
     Active Substance: DEXAMETHASONE
     Indication: BRAIN OEDEMA
     Dosage: 0.5 MG, QD
     Route: 048
     Dates: start: 20180724, end: 20180806
  5. DEXAMETHASONE. [Suspect]
     Active Substance: DEXAMETHASONE
     Indication: PROCEDURAL VOMITING
     Dosage: 1 MG, QD
     Route: 048
     Dates: start: 20180516, end: 20180603
  6. DEXAMETHASONE. [Suspect]
     Active Substance: DEXAMETHASONE
     Dosage: 8 MG, QD
     Route: 048
     Dates: start: 20171113, end: 20190223
  7. PANTOPRAZOLE [Concomitant]
     Active Substance: PANTOPRAZOLE
     Indication: PROPHYLAXIS
     Dosage: 40 MG, QD
     Route: 048
     Dates: start: 20170201
  8. MONO EMBOLEX [Concomitant]
     Active Substance: CERTOPARIN SODIUM
     Indication: PROPHYLAXIS
     Dosage: 3000 IU, QD
     Route: 058
     Dates: start: 20170131
  9. DEX UNK [Suspect]
     Active Substance: UNSPECIFIED INGREDIENT
     Indication: BRAIN OEDEMA
  10. DEX UNK [Suspect]
     Active Substance: UNSPECIFIED INGREDIENT
     Indication: METASTASES TO CENTRAL NERVOUS SYSTEM
  11. DEX UNK [Suspect]
     Active Substance: UNSPECIFIED INGREDIENT
     Indication: VISION BLURRED
  12. VEMURAFENIB. [Suspect]
     Active Substance: VEMURAFENIB
     Indication: METASTATIC MALIGNANT MELANOMA
     Dosage: 960 MG, QD
     Route: 048
     Dates: start: 20180314, end: 20180619
  13. VIMPAT [Concomitant]
     Active Substance: LACOSAMIDE
     Indication: EPILEPSY
  14. MOVICOL [Concomitant]
     Active Substance: POLYETHYLENE GLYCOL 3350\POTASSIUM CHLORIDE\SODIUM BICARBONATE\SODIUM CHLORIDE
     Indication: CONSTIPATION
  15. SIMVASTATIN. [Concomitant]
     Active Substance: SIMVASTATIN
     Indication: HYPERTENSION
     Dosage: 30 MG, QD
     Route: 048
     Dates: start: 20150501
  16. DEX UNK [Suspect]
     Active Substance: UNSPECIFIED INGREDIENT
     Indication: VISION BLURRED
  17. DEXAMETHASONE. [Suspect]
     Active Substance: DEXAMETHASONE
     Dosage: 2 MG, QD
     Route: 048
     Dates: start: 20170922, end: 20180123
  18. VEMURAFENIB. [Suspect]
     Active Substance: VEMURAFENIB
     Dosage: 480 MG, QD
     Route: 048
     Dates: start: 20170903, end: 20170903
  19. VEMURAFENIB. [Suspect]
     Active Substance: VEMURAFENIB
     Dosage: 960 MG, BID
     Route: 048
     Dates: start: 20170823
  20. VOMEX A [Concomitant]
     Active Substance: DIMENHYDRINATE
     Indication: PAIN
  21. RAMIPRIL. [Concomitant]
     Active Substance: RAMIPRIL
     Indication: HYPERTENSION
     Dosage: 5 MG, QD (MOST RECENT DOSE 02NOV2017)
     Route: 048
     Dates: start: 20140501
  22. DEX UNK [Suspect]
     Active Substance: UNSPECIFIED INGREDIENT
     Indication: SEROUS RETINOPATHY
     Dosage: 1 MG, QD
     Route: 031
     Dates: start: 20170929
  23. DEX UNK [Suspect]
     Active Substance: UNSPECIFIED INGREDIENT
     Indication: PROCEDURAL NAUSEA
  24. DEXAMETHASONE. [Suspect]
     Active Substance: DEXAMETHASONE
     Indication: PROCEDURAL NAUSEA
     Dosage: 0.5 MG, QD
     Route: 048
     Dates: start: 20180604, end: 20180606
  25. DEXAMETHASONE. [Suspect]
     Active Substance: DEXAMETHASONE
     Dosage: 8 MG, QD
     Route: 048
     Dates: start: 20170901, end: 20170903
  26. VEMURAFENIB. [Suspect]
     Active Substance: VEMURAFENIB
     Dosage: 480 MG, QD
     Route: 048
     Dates: start: 20170827, end: 20170828
  27. VEMURAFENIB. [Suspect]
     Active Substance: VEMURAFENIB
     Dosage: 960 MG, QD
     Route: 048
     Dates: start: 20170823, end: 20170826
  28. FOLVERLAN [Concomitant]
     Active Substance: FOLIC ACID
     Indication: PROPHYLAXIS
     Dosage: 5 MG, QD
     Route: 048
     Dates: start: 20181022, end: 20181203
  29. FERRO SANOL [Concomitant]
     Active Substance: FERROUS GLYCINE SULFATE
     Indication: PROPHYLAXIS
     Dosage: 100 MG, QD
     Route: 048
     Dates: start: 20181022, end: 20181203
  30. DEX UNK [Suspect]
     Active Substance: UNSPECIFIED INGREDIENT
     Indication: PROCEDURAL NAUSEA
  31. DEXAMETHASONE. [Suspect]
     Active Substance: DEXAMETHASONE
     Dosage: 4 MG, QD
     Route: 048
     Dates: start: 20180124, end: 20180220
  32. VEMURAFENIB. [Suspect]
     Active Substance: VEMURAFENIB
     Dosage: 480 MG, QD
     Route: 048
     Dates: start: 20170831, end: 20170903
  33. SIMVASTATIN. [Concomitant]
     Active Substance: SIMVASTATIN
     Indication: VASCULAR GRAFT
  34. RAMIPRIL. [Concomitant]
     Active Substance: RAMIPRIL
     Indication: VASCULAR GRAFT
  35. DEX UNK [Suspect]
     Active Substance: UNSPECIFIED INGREDIENT
     Indication: PROCEDURAL HEADACHE
  36. DEXAMETHASONE. [Suspect]
     Active Substance: DEXAMETHASONE
     Dosage: 4 MG, QD
     Route: 048
     Dates: start: 20170904, end: 20170921
  37. VIMPAT [Concomitant]
     Active Substance: LACOSAMIDE
     Indication: PROPHYLAXIS
     Dosage: 100 MG, QD
     Route: 048
     Dates: start: 20190426
  38. MOVICOL [Concomitant]
     Active Substance: POLYETHYLENE GLYCOL 3350\POTASSIUM CHLORIDE\SODIUM BICARBONATE\SODIUM CHLORIDE
     Indication: PROPHYLAXIS
     Dosage: 1381 MG, QD
     Route: 048
     Dates: start: 20190124, end: 20190507
  39. DEX UNK [Suspect]
     Active Substance: UNSPECIFIED INGREDIENT
     Indication: METASTASES TO CENTRAL NERVOUS SYSTEM
     Dosage: 1 MG, QD
     Route: 031
     Dates: start: 20170927, end: 20171102
  40. DEX UNK [Suspect]
     Active Substance: UNSPECIFIED INGREDIENT
     Indication: PROCEDURAL HEADACHE
     Dosage: 1 MG, QD (EYE OINTMENT)
     Route: 031
     Dates: start: 20171103, end: 20190223
  41. DEXAMETHASONE. [Suspect]
     Active Substance: DEXAMETHASONE
     Indication: PROCEDURAL HEADACHE
     Dosage: 0.5 MG, QD
     Route: 048
     Dates: start: 20180710, end: 20180723
  42. DEXAMETHASONE. [Suspect]
     Active Substance: DEXAMETHASONE
     Indication: SEROUS RETINOPATHY
     Dosage: 0.5 MG, QD
     Route: 048
     Dates: start: 20180612, end: 20180709
  43. DEXAMETHASONE. [Suspect]
     Active Substance: DEXAMETHASONE
     Indication: VISION BLURRED
     Dosage: 1 MG, QD
     Route: 048
     Dates: start: 20180409, end: 20180515
  44. DEX UNK [Suspect]
     Active Substance: UNSPECIFIED INGREDIENT
     Indication: BRAIN OEDEMA
     Dosage: 1 MG(EYE OINTMENT), QD
     Route: 031
     Dates: start: 20170929, end: 20171102
  45. DEXAMETHASONE. [Suspect]
     Active Substance: DEXAMETHASONE
     Indication: METASTASES TO CENTRAL NERVOUS SYSTEM
     Dosage: 0.5 MG, QD
     Route: 048
     Dates: start: 20180607, end: 20180611
  46. VEMURAFENIB. [Suspect]
     Active Substance: VEMURAFENIB
     Dosage: 720 MG, QD
     Route: 048
     Dates: start: 20170907, end: 20180308
  47. VEMURAFENIB. [Suspect]
     Active Substance: VEMURAFENIB
     Dosage: 720 MG, QD
     Route: 048
     Dates: start: 20170904, end: 20170906
  48. VOMEX A [Concomitant]
     Active Substance: DIMENHYDRINATE
     Indication: PROPHYLAXIS OF NAUSEA AND VOMITING
     Dosage: 50 MG, TID (IN CASE OF NAUSEA MAX 3X /DAY)
     Dates: start: 20180620, end: 20191119
  49. ACETYLSALICYLIC ACID [Concomitant]
     Active Substance: ASPIRIN
     Indication: VASCULAR GRAFT
     Dosage: 100 MG, QD
     Route: 048
     Dates: start: 20140501
  50. ACETYLSALICYLIC ACID [Concomitant]
     Active Substance: ASPIRIN
     Indication: HYPERTENSION

REACTIONS (33)
  - Hyperglycaemia [Recovering/Resolving]
  - Subcutaneous abscess [Recovered/Resolved]
  - Cerebral ischaemia [Recovered/Resolved with Sequelae]
  - Dermal cyst [Not Recovered/Not Resolved]
  - Fatigue [Not Recovered/Not Resolved]
  - Spinal osteoarthritis [Not Recovered/Not Resolved]
  - Pain in extremity [Not Recovered/Not Resolved]
  - Pyrexia [Recovered/Resolved]
  - Cough [Recovered/Resolved]
  - Skin mass [Unknown]
  - Lymphoedema [Unknown]
  - Monoparesis [Not Recovered/Not Resolved]
  - Brain oedema [Not Recovered/Not Resolved]
  - Epidural lipomatosis [Not Recovered/Not Resolved]
  - Small intestinal haemorrhage [Recovered/Resolved]
  - Conjunctivitis [Not Recovered/Not Resolved]
  - Peripheral motor neuropathy [Unknown]
  - Serous retinopathy [Recovered/Resolved with Sequelae]
  - Peripheral sensory neuropathy [Unknown]
  - Peripheral nerve lesion [Unknown]
  - Pulmonary embolism [Unknown]
  - Muscular weakness [Unknown]
  - Hyperkeratosis [Unknown]
  - Mucosal dryness [Recovered/Resolved]
  - Photosensitivity reaction [Recovered/Resolved]
  - Fall [Unknown]
  - Epilepsy [Unknown]
  - Dysgeusia [Recovered/Resolved]
  - Skin hypopigmentation [Not Recovered/Not Resolved]
  - Vision blurred [Recovered/Resolved]
  - Cataract [Not Recovered/Not Resolved]
  - Skin infection [Unknown]
  - Intervertebral disc protrusion [Not Recovered/Not Resolved]

NARRATIVE: CASE EVENT DATE: 20170823
